FAERS Safety Report 9208294 (Version 1)
Quarter: 2013Q2

REPORT INFORMATION
  Report Type: Spontaneous
  Country: TR (occurrence: TR)
  Receive Date: 20130403
  Receipt Date: 20130403
  Transmission Date: 20140414
  Serious: Yes (Other)
  Sender: FDA-Public Use
  Company Number: TR-B.I. PHARMACEUTICALS,INC./RIDGEFIELD-2013-BI-08526GD

PATIENT
  Sex: Male

DRUGS (2)
  1. PRAMIPEXOLE [Suspect]
     Indication: PARKINSON^S DISEASE
     Dosage: 4 MG
  2. PRAMIPEXOLE [Suspect]
     Dosage: UP TO 12MG/DAY

REACTIONS (8)
  - Impulse-control disorder [Unknown]
  - Pathological gambling [Unknown]
  - Mania [Unknown]
  - Psychomotor hyperactivity [Unknown]
  - Hypomania [Unknown]
  - Speech disorder [Unknown]
  - Insomnia [Unknown]
  - Jealous delusion [Unknown]
